FAERS Safety Report 5332919-1 (Version None)
Quarter: 2007Q2

REPORT INFORMATION
  Report Type: 
  Country: None (occurrence: None)
  Receive Date: 20070521
  Receipt Date: 20070508
  Transmission Date: 20071010
  Serious: Yes (Hospitalization)
  Sender: FDA-Public Use
  Company Number: 2007BI010024

PATIENT
  Age: 47 Year
  Sex: Female
  Weight: 170.5525 kg

DRUGS (1)
  1. AVONEX [Suspect]
     Indication: MULTIPLE SCLEROSIS
     Dosage: 30 UG;QW;IM
     Route: 030
     Dates: start: 20040301, end: 20051031

REACTIONS (8)
  - ARTHRALGIA [None]
  - INFLUENZA LIKE ILLNESS [None]
  - MIGRAINE [None]
  - MYALGIA [None]
  - OBESITY [None]
  - PAIN [None]
  - TEMPOROMANDIBULAR JOINT SYNDROME [None]
  - TOOTH FRACTURE [None]
